FAERS Safety Report 17565430 (Version 1)
Quarter: 2020Q1

REPORT INFORMATION
  Report Type: Spontaneous
  Country: US (occurrence: US)
  Receive Date: 20200320
  Receipt Date: 20200320
  Transmission Date: 20200409
  Serious: No
  Sender: FDA-Public Use
  Company Number: US-PFIZER INC-2020119680

PATIENT
  Age: 78 Year
  Sex: Female
  Weight: 70 kg

DRUGS (3)
  1. AZITHROMYCIN ANHYDROUS. [Suspect]
     Active Substance: AZITHROMYCIN ANHYDROUS
     Indication: LOWER RESPIRATORY TRACT INFECTION
     Dosage: 500 MG, SINGLE
     Dates: start: 20200122, end: 20200122
  2. OFLOXACIN. [Suspect]
     Active Substance: OFLOXACIN
     Indication: CONJUNCTIVITIS
     Dosage: 2 GTT, 3X/DAY (1 GTT IN EACH EYE, 3X/DAY)
     Route: 047
     Dates: start: 20200122, end: 20200131
  3. AZITHROMYCIN ANHYDROUS. [Suspect]
     Active Substance: AZITHROMYCIN ANHYDROUS
     Indication: UPPER RESPIRATORY TRACT INFECTION
     Dosage: 250 MG, 1X/DAY DAYS 2-5
     Dates: start: 20200123, end: 20200126

REACTIONS (2)
  - Fatigue [Unknown]
  - Drug ineffective [Unknown]

NARRATIVE: CASE EVENT DATE: 202001
